FAERS Safety Report 8836333 (Version 3)
Quarter: 2012Q4

REPORT INFORMATION
  Report Type: 
  Country: US (occurrence: US)
  Receive Date: 20121011
  Receipt Date: 20121123
  Transmission Date: 20130627
  Serious: Yes (Death, Hospitalization, Other)
  Sender: FDA-Public Use
  Company Number: US-PFIZER INC-2012248649

PATIENT
  Age: 66 Year
  Sex: Female

DRUGS (13)
  1. REVATIO [Suspect]
     Indication: PULMONARY HYPERTENSION
     Dosage: 20 mg, 3x/day
     Dates: start: 20120524, end: 20121003
  2. PROVENTIL SOLUTION [Concomitant]
     Dosage: 2.5 mg via nebulizer every 8 hours as needed
  3. XANAX [Concomitant]
     Dosage: 0.5 tablet twice daily needed, may take a dose at bedtime if needed
     Dates: start: 20120627
  4. LASIX [Concomitant]
     Dosage: 50mg in am, 40mg in pm
     Route: 048
     Dates: start: 20120526
  5. MUCINEX [Concomitant]
     Dosage: 600 mg, 2x/day
     Route: 048
  6. TUSSIONEX PENNKINETIC [Concomitant]
     Dosage: 1-2 Tsp twice daily as needed
     Route: 048
     Dates: start: 20120815
  7. PROTONIX [Concomitant]
     Dosage: 40 mg, 1x/day
     Route: 048
     Dates: start: 20120618
  8. POTASSIUM CHLORIDE [Concomitant]
     Dosage: 45ml daily (30 in am, 15 in evening)
     Route: 048
     Dates: start: 20120618
  9. DELTASONE [Concomitant]
     Dosage: 30mg daily
     Route: 048
     Dates: start: 20120618
  10. SENOKOT [Concomitant]
     Dosage: 17.2 mg, 2x/day as needed
     Route: 048
     Dates: start: 20120618
  11. OCEAN NASAL SPRAY [Concomitant]
     Dosage: 1-2 sprays each nostril as needed
     Route: 045
     Dates: start: 20120618
  12. BACTRIM DS [Concomitant]
     Dosage: 1 Tab Monday, Wednesday and Friday
     Route: 048
     Dates: start: 20120815
  13. COUMADIN ^BOOTS^ [Concomitant]
     Dosage: 3mg Sunday, Tuesday, Thursday, Saturday, 1.5mg Monday, Wednesday, Friday
     Route: 048
     Dates: start: 20120618

REACTIONS (30)
  - Septic shock [Fatal]
  - Disseminated intravascular coagulation [Fatal]
  - Pulmonary hypertension [Fatal]
  - Cardiogenic shock [Unknown]
  - Renal failure acute [Unknown]
  - Right ventricular failure [Unknown]
  - Supraventricular tachycardia [Unknown]
  - Oedema peripheral [Unknown]
  - Palpitations [Unknown]
  - Dyspnoea [Unknown]
  - Gait disturbance [Unknown]
  - Productive cough [Unknown]
  - Dizziness [Unknown]
  - Weight increased [Unknown]
  - Fatigue [Unknown]
  - Abdominal pain [Unknown]
  - Asthenia [Unknown]
  - Oedema [Unknown]
  - Pulmonary fibrosis [Unknown]
  - Hiatus hernia [Unknown]
  - Oxygen saturation decreased [Unknown]
  - Cardiomegaly [Unknown]
  - Hypotension [Unknown]
  - Epistaxis [Unknown]
  - Mouth haemorrhage [Unknown]
  - Petechiae [Unknown]
  - Bradycardia [Unknown]
  - Decreased appetite [Unknown]
  - Constipation [Unknown]
  - Contusion [Unknown]
